FAERS Safety Report 19144079 (Version 3)
Quarter: 2021Q2

REPORT INFORMATION
  Report Type: Spontaneous
  Country: FI (occurrence: FI)
  Receive Date: 20210416
  Receipt Date: 20210511
  Transmission Date: 20210717
  Serious: Yes (Other)
  Sender: FDA-Public Use
  Company Number: FI-SA-2021SA123672

PATIENT
  Age: 55 Year
  Sex: Female

DRUGS (18)
  1. CORTISONE [Concomitant]
     Active Substance: CORTISONE
     Dosage: UNK
     Dates: start: 2020
  2. BISOPROLOL ACCORD [Concomitant]
     Active Substance: BISOPROLOL
     Dosage: 5MG
     Route: 048
  3. ATORVASTATIN BLUEFISH AB [Concomitant]
     Dosage: 10MG
     Route: 048
  4. TAFLOTAN [Concomitant]
     Active Substance: TAFLUPROST
     Dosage: 1 GTT DROPS, QD
     Route: 047
  5. DINIT [ISOSORBIDE DINITRATE] [Concomitant]
     Dosage: 125 MG
  6. VENTOLIN [Concomitant]
     Active Substance: ALBUTEROL SULFATE
     Dosage: 01MG
  7. DUPIXENT [Suspect]
     Active Substance: DUPILUMAB
     Indication: ASTHMA
     Dosage: 600 MG, 1X
     Route: 058
     Dates: start: 202101, end: 202101
  8. KALEORID [Concomitant]
     Active Substance: POTASSIUM CHLORIDE
     Route: 048
  9. OFTASTAD [Concomitant]
     Dosage: 1 GTT DROPS, QD
     Route: 047
  10. AMLODIPIN ORION [AMLODIPINE BESILATE] [Concomitant]
     Dosage: 5 MG, QD
     Route: 048
  11. MONTELUKAST KRKA [Concomitant]
     Dosage: 10 MG, QD
     Route: 048
  12. JARDIANCE [Concomitant]
     Active Substance: EMPAGLIFLOZIN
     Dosage: 10MG
     Route: 048
  13. DUPIXENT [Suspect]
     Active Substance: DUPILUMAB
     Dosage: 300 MG, QOW
     Route: 058
     Dates: start: 2021, end: 202103
  14. CLOPIDOGREL [Concomitant]
     Active Substance: CLOPIDOGREL BISULFATE
     Dosage: 75MG
     Route: 048
  15. PARACETAMOL [Concomitant]
     Active Substance: ACETAMINOPHEN
     Dosage: 1 G, PRN
     Route: 048
  16. DYMISTA [Concomitant]
     Active Substance: AZELASTINE HYDROCHLORIDE\FLUTICASONE PROPIONATE
     Route: 055
  17. SPIRIVA RESPIMAT [Concomitant]
     Active Substance: TIOTROPIUM BROMIDE
     Route: 055
  18. METFORMIN HYDROCHLORIDE. [Concomitant]
     Active Substance: METFORMIN HYDROCHLORIDE
     Dosage: 500 MG, QD
     Route: 048

REACTIONS (15)
  - Eosinophilia [Recovering/Resolving]
  - Haemoptysis [Not Recovered/Not Resolved]
  - Abdominal pain upper [Unknown]
  - Hypersensitivity vasculitis [Unknown]
  - Oedema mucosal [Unknown]
  - Asthma [Unknown]
  - Bronchial oedema [Not Recovered/Not Resolved]
  - Cough [Not Recovered/Not Resolved]
  - Bronchial wall thickening [Unknown]
  - C-reactive protein decreased [Unknown]
  - Haematoma [Unknown]
  - Eosinophilic granulomatosis with polyangiitis [Recovered/Resolved]
  - Sinusitis [Unknown]
  - Antineutrophil cytoplasmic antibody increased [Recovered/Resolved]
  - Red blood cell sedimentation rate increased [Unknown]

NARRATIVE: CASE EVENT DATE: 202102
